FAERS Safety Report 4308927-6 (Version None)
Quarter: 2004Q1

REPORT INFORMATION
  Report Type: 
  Country: None (occurrence: None)
  Receive Date: 20040227
  Receipt Date: 20040217
  Transmission Date: 20041129
  Serious: Yes (Death, Life-Threatening)
  Sender: FDA-Public Use
  Company Number: FR-JNJFOC-20040203697

PATIENT
  Age: 88 Year
  Sex: Female

DRUGS (6)
  1. TRAMADOL HCL [Suspect]
     Dosage: 50 MG, 6 IN 1 DAY, ORAL
     Route: 048
     Dates: start: 20040105, end: 20040106
  2. AUGMENTIN [Concomitant]
  3. LOVENOX [Concomitant]
  4. ACTRAPID (INSULIN HUMAN) [Concomitant]
  5. BRICANYL [Concomitant]
  6. ATROVENT [Concomitant]

REACTIONS (4)
  - ACUTE RESPIRATORY DISTRESS SYNDROME [None]
  - HYPERGLYCAEMIA [None]
  - PNEUMONITIS [None]
  - SOMNOLENCE [None]
